FAERS Safety Report 25947700 (Version 1)
Quarter: 2025Q4

REPORT INFORMATION
  Report Type: Spontaneous
  Country: US (occurrence: None)
  Receive Date: 20251022
  Receipt Date: 20251022
  Transmission Date: 20260119
  Serious: Yes (Hospitalization)
  Sender: FDA-CTU
  Company Number: None

PATIENT
  Age: 76 Year
  Sex: Female
  Weight: 78.5 kg

DRUGS (2)
  1. PONATINIB [Suspect]
     Active Substance: PONATINIB
     Dates: end: 20251001
  2. VINCRISTINE [Suspect]
     Active Substance: VINCRISTINE

REACTIONS (8)
  - Peripheral sensory neuropathy [None]
  - Therapy interrupted [None]
  - Enterocolitis infectious [None]
  - Colitis [None]
  - Acute kidney injury [None]
  - Hypotension [None]
  - Loss of personal independence in daily activities [None]
  - Encephalopathy [None]

NARRATIVE: CASE EVENT DATE: 20251001
